FAERS Safety Report 9379482 (Version 2)
Quarter: 2013Q3

REPORT INFORMATION
  Report Type: Spontaneous
  Country: GB (occurrence: GB)
  Receive Date: 20130702
  Receipt Date: 20130712
  Transmission Date: 20140515
  Serious: Yes (Other)
  Sender: FDA-Public Use
  Company Number: GB-PERRIGO-13GB006869

PATIENT
  Age: 45 Year
  Sex: Male
  Weight: 95.24 kg

DRUGS (1)
  1. IBUPROFEN 200 MG 16028/0096 [Suspect]
     Indication: PAIN
     Dosage: 400 MG, SINGLE
     Route: 048
     Dates: start: 20130624, end: 20130624

REACTIONS (7)
  - Dyspnoea [Recovered/Resolved]
  - Throat tightness [Recovered/Resolved]
  - Loss of consciousness [Recovered/Resolved]
  - Throat irritation [Recovered/Resolved]
  - Oropharyngeal pain [Recovering/Resolving]
  - Dyspepsia [Recovering/Resolving]
  - Paraesthesia [Recovered/Resolved]
